FAERS Safety Report 18463368 (Version 2)
Quarter: 2021Q4

REPORT INFORMATION
  Report Type: Spontaneous
  Country: US (occurrence: US)
  Receive Date: 20201104
  Receipt Date: 20211215
  Transmission Date: 20220303
  Serious: No
  Sender: FDA-Public Use
  Company Number: US-GW PHARMA-202010USGW03749

PATIENT

DRUGS (1)
  1. EPIDIOLEX [Suspect]
     Active Substance: CANNABIDIOL
     Indication: Lennox-Gastaut syndrome
     Dosage: 450 MILLIGRAM, BID
     Route: 048
     Dates: start: 20200609

REACTIONS (2)
  - Seizure [Unknown]
  - Seizure [Unknown]

NARRATIVE: CASE EVENT DATE: 20200101
